FAERS Safety Report 7501404-0 (Version None)
Quarter: 2011Q2

REPORT INFORMATION
  Report Type: 
  Country: None (occurrence: None)
  Receive Date: 20110524
  Receipt Date: 20110518
  Transmission Date: 20111010
  Serious: Yes (Life-Threatening)
  Sender: FDA-Public Use
  Company Number: US-ROXANE LABORATORIES, INC.-2011-RO-00689RO

PATIENT
  Age: 24 Year
  Sex: Male

DRUGS (2)
  1. AZATHIOPRINE [Suspect]
     Indication: DERMATITIS ATOPIC
     Dosage: 75 MG
  2. ALBUTEROL [Concomitant]
     Indication: ASTHMA
     Route: 055

REACTIONS (2)
  - ESCHERICHIA SEPSIS [None]
  - BONE MARROW TOXICITY [None]
